FAERS Safety Report 5504255-1 (Version None)
Quarter: 2007Q4

REPORT INFORMATION
  Report Type: 
  Country: None (occurrence: None)
  Receive Date: 20071101
  Receipt Date: 20071026
  Transmission Date: 20080405
  Serious: Yes (Congenital Anomaly)
  Sender: FDA-Public Use
  Company Number: DK-GILEAD-2007-0012360

PATIENT
  Sex: Female

DRUGS (2)
  1. VIREAD [Suspect]
     Indication: HEPATITIS B VIRUS
     Dates: start: 20070501
  2. 3TC [Concomitant]
     Indication: HEPATITIS B VIRUS
     Dates: start: 20070501

REACTIONS (2)
  - PREGNANCY [None]
  - ULTRASOUND ANTENATAL SCREEN ABNORMAL [None]
